FAERS Safety Report 7945957-7 (Version None)
Quarter: 2011Q4

REPORT INFORMATION
  Report Type: 
  Country: None (occurrence: None)
  Receive Date: 20111129
  Receipt Date: 20111122
  Transmission Date: 20120403
  Serious: Yes (Other)
  Sender: FDA-Public Use
  Company Number: PHEH2011US010048

PATIENT
  Sex: Female

DRUGS (1)
  1. VOLTAREN [Suspect]
     Dosage: ONE TABLET TWICE A DAY, EVERY OTHER DAY
     Route: 048

REACTIONS (4)
  - MENISCUS LESION [None]
  - ARTHRITIS [None]
  - EXOSTOSIS [None]
  - DRUG INEFFECTIVE [None]
